FAERS Safety Report 7927444-5 (Version None)
Quarter: 2011Q4

REPORT INFORMATION
  Report Type: 
  Country: None (occurrence: None)
  Receive Date: 20111118
  Receipt Date: 20111108
  Transmission Date: 20120403
  Serious: Yes (Other)
  Sender: FDA-Public Use
  Company Number: US-ABBOTT-11P-163-0872764-00

PATIENT
  Sex: Male
  Weight: 104.42 kg

DRUGS (12)
  1. HUMIRA [Suspect]
     Indication: CROHN'S DISEASE
     Route: 058
     Dates: start: 20100901
  2. PANTOPRAZOLE [Concomitant]
     Indication: GASTROOESOPHAGEAL REFLUX DISEASE
  3. CYCLOBENZAPRINE [Concomitant]
     Indication: BACK INJURY
     Dosage: AT BEDTIME
  4. STOOL SOFTENER [Concomitant]
     Indication: CONSTIPATION
  5. HYDROCODONE BITARTRATE [Concomitant]
     Indication: PAIN
  6. DIAZEPAM [Concomitant]
     Indication: BACK INJURY
     Dosage: DAILY IN MORNING
  7. SIMVASTATIN [Concomitant]
     Indication: BLOOD CHOLESTEROL INCREASED
  8. OPANA ER [Concomitant]
     Indication: BACK PAIN
  9. VITAMIN B-12 [Concomitant]
     Indication: VITAMIN SUPPLEMENTATION
  10. LISINOPRIL AND HYDROCHLOROTHIAZIDE [Concomitant]
     Indication: HYPERTENSION
     Dosage: 20-25 MG DAILY
  11. PANTOPRAZOLE [Concomitant]
     Indication: CROHN'S DISEASE
  12. DOXYCYCLINE [Concomitant]
     Indication: ROSACEA

REACTIONS (5)
  - HAEMORRHAGE URINARY TRACT [None]
  - URINARY RETENTION [None]
  - BLOOD URINE PRESENT [None]
  - BLOOD URINE [None]
  - PROSTATOMEGALY [None]
